FAERS Safety Report 7460228-3 (Version None)
Quarter: 2011Q2

REPORT INFORMATION
  Report Type: 
  Country: None (occurrence: None)
  Receive Date: 20110505
  Receipt Date: 20110427
  Transmission Date: 20111010
  Serious: Yes (Hospitalization, Other)
  Sender: FDA-Public Use
  Company Number: US-NOVOPROD-322807

PATIENT
  Age: 80 Year
  Sex: Male
  Weight: 111 kg

DRUGS (14)
  1. SERTRALINE [Concomitant]
     Indication: PRODUCT USED FOR UNKNOWN INDICATION
     Dosage: 100 MG, QD
  2. VICTOZA [Suspect]
     Dosage: 1.8 U, QD
     Route: 058
     Dates: end: 20101201
  3. METOCLOPRAMIDE [Concomitant]
     Indication: PRODUCT USED FOR UNKNOWN INDICATION
     Dosage: 10 MG, BEFORE MEALS AND AT BEDTIME
  4. SIMVASTATIN [Concomitant]
     Indication: PRODUCT USED FOR UNKNOWN INDICATION
     Dosage: 80 MG, QD
  5. LISINOPRIL [Concomitant]
     Indication: PRODUCT USED FOR UNKNOWN INDICATION
     Dosage: 10 MG, QD
  6. ALPRAZOLAM [Concomitant]
     Indication: PRODUCT USED FOR UNKNOWN INDICATION
     Dosage: 0.5 MG, BID
     Route: 048
  7. DIGOXIN [Concomitant]
     Indication: PRODUCT USED FOR UNKNOWN INDICATION
     Dosage: 0.25 MG, QD
  8. VICTOZA [Suspect]
     Indication: TYPE 2 DIABETES MELLITUS
     Dosage: 0.6 MG, QD
     Route: 058
     Dates: start: 20100722
  9. COUMADIN [Concomitant]
     Indication: PRODUCT USED FOR UNKNOWN INDICATION
     Dosage: 7.5 MG, FOR 2 DAYS
  10. COUMADIN [Concomitant]
     Dosage: 10 MG, FOR 1 DAY
  11. CELEBREX [Concomitant]
     Indication: PRODUCT USED FOR UNKNOWN INDICATION
     Dosage: 200 MG, QD
  12. METFORMIN [Suspect]
     Indication: TYPE 2 DIABETES MELLITUS
  13. SYNTHROID [Concomitant]
     Indication: PRODUCT USED FOR UNKNOWN INDICATION
     Dosage: 0.15 MG, QD
  14. VICTOZA [Suspect]
     Dosage: 1.2 MG, QD
     Route: 058

REACTIONS (9)
  - NAUSEA [None]
  - DECREASED APPETITE [None]
  - ORTHOSTATIC HYPOTENSION [None]
  - DIARRHOEA [None]
  - ASTHENIA [None]
  - VOMITING [None]
  - DEHYDRATION [None]
  - RENAL FAILURE [None]
  - WEIGHT DECREASED [None]
